FAERS Safety Report 12073365 (Version 1)
Quarter: 2016Q1

REPORT INFORMATION
  Report Type: Spontaneous
  Country: US (occurrence: US)
  Receive Date: 20160212
  Receipt Date: 20160212
  Transmission Date: 20160526
  Serious: Yes (Other)
  Sender: FDA-Public Use
  Company Number: US-BEH-2016058691

PATIENT
  Sex: Male
  Weight: 108 kg

DRUGS (22)
  1. NORVIR [Concomitant]
     Active Substance: RITONAVIR
  2. HYDROCODONE [Concomitant]
     Active Substance: HYDROCODONE
  3. SODIUM CHLORIDE. [Concomitant]
     Active Substance: SODIUM CHLORIDE
  4. SINGULAIR [Concomitant]
     Active Substance: MONTELUKAST SODIUM
  5. SPIRIVA [Concomitant]
     Active Substance: TIOTROPIUM BROMIDE MONOHYDRATE
  6. HIZENTRA [Suspect]
     Active Substance: HUMAN IMMUNOGLOBULIN G
     Indication: IMMUNODEFICIENCY COMMON VARIABLE
     Dosage: 2 GM 10 ML VIALS
     Route: 058
  7. EPIPEN [Concomitant]
     Active Substance: EPINEPHRINE
  8. TRAMADOL. [Concomitant]
     Active Substance: TRAMADOL
  9. ZYVOX [Concomitant]
     Active Substance: LINEZOLID
  10. CODEINE SULFATE. [Concomitant]
     Active Substance: CODEINE SULFATE
  11. PREDNISONE. [Concomitant]
     Active Substance: PREDNISONE
  12. HIZENTRA [Suspect]
     Active Substance: HUMAN IMMUNOGLOBULIN G
     Indication: SELECTIVE IGG SUBCLASS DEFICIENCY
     Dosage: 1 GM 5 ML VIAL
     Route: 058
  13. HIZENTRA [Suspect]
     Active Substance: HUMAN IMMUNOGLOBULIN G
     Dosage: 4 GM 20 ML VIALS
     Route: 058
  14. LASIX [Concomitant]
     Active Substance: FUROSEMIDE
  15. DUONEB [Concomitant]
     Active Substance: ALBUTEROL SULFATE\IPRATROPIUM BROMIDE
  16. ZOFRAN [Concomitant]
     Active Substance: ONDANSETRON HYDROCHLORIDE
  17. MUCOMYST [Concomitant]
     Active Substance: ACETYLCYSTEINE
  18. DOXYCYCLINE. [Concomitant]
     Active Substance: DOXYCYCLINE
  19. BENZONATATE. [Concomitant]
     Active Substance: BENZONATATE
  20. CLONAZEPAM. [Concomitant]
     Active Substance: CLONAZEPAM
  21. ALBUTEROL. [Concomitant]
     Active Substance: ALBUTEROL
  22. EPIPEN [Concomitant]
     Active Substance: EPINEPHRINE

REACTIONS (1)
  - Pneumonia [Unknown]
